FAERS Safety Report 5757647-X (Version None)
Quarter: 2008Q2

REPORT INFORMATION
  Report Type: 
  Country: None (occurrence: None)
  Receive Date: 20080603
  Receipt Date: 20080523
  Transmission Date: 20081010
  Serious: Yes (Hospitalization)
  Sender: FDA-Public Use
  Company Number: GB-PFIZER INC-2008044788

PATIENT
  Sex: Female
  Weight: 82 kg

DRUGS (2)
  1. SU-011,248 [Suspect]
     Indication: BREAST CANCER
     Route: 048
  2. CAPECITABINE [Suspect]
     Indication: BREAST CANCER
     Route: 048

REACTIONS (1)
  - PLEURAL EFFUSION [None]
